FAERS Safety Report 18668683 (Version 1)
Quarter: 2020Q4

REPORT INFORMATION
  Report Type: Spontaneous
  Country: US (occurrence: US)
  Receive Date: 20201226
  Receipt Date: 20201226
  Transmission Date: 20210114
  Serious: Yes (Hospitalization)
  Sender: FDA-Public Use
  Company Number: None

PATIENT
  Age: 82 Year
  Sex: Male

DRUGS (4)
  1. XARELTO [Concomitant]
     Active Substance: RIVAROXABAN
  2. DOFETILIDE. [Suspect]
     Active Substance: DOFETILIDE
     Indication: ATRIAL FIBRILLATION
     Dosage: ?          OTHER FREQUENCY:EVERY 12 HRS;?
     Route: 048
     Dates: start: 20180118
  3. MAGNESIUM-OX [Concomitant]
  4. METOPROL SUC [Concomitant]

REACTIONS (1)
  - Colostomy [None]

NARRATIVE: CASE EVENT DATE: 20201225
